FAERS Safety Report 9433583 (Version 1)
Quarter: 2013Q3

REPORT INFORMATION
  Report Type: Report from Study
  Country: US (occurrence: US)
  Receive Date: 20130731
  Receipt Date: 20130731
  Transmission Date: 20140515
  Serious: Yes (Other)
  Sender: FDA-Public Use
  Company Number: PHHY2013US078707

PATIENT
  Sex: Female
  Weight: 97.96 kg

DRUGS (5)
  1. GILENYA [Suspect]
     Indication: MULTIPLE SCLEROSIS
     Dosage: 0.5 MG, UNK
     Dates: start: 20111227
  2. LEVETIRACETAM [Suspect]
     Dosage: 500 MG, AT BED TIME
     Route: 048
  3. MULTIVIT//VITAMINS NOS [Concomitant]
     Dosage: 1 DF, QD
     Route: 048
  4. TOPIRAMATE [Concomitant]
     Dosage: 250 MG, QD
     Route: 048
  5. VITAMIN D [Concomitant]
     Dosage: 6000 IU, QW
     Route: 048

REACTIONS (5)
  - Convulsion [Unknown]
  - Hypotension [Unknown]
  - Anxiety [Unknown]
  - Multiple sclerosis relapse [Unknown]
  - Fatigue [Unknown]
